FAERS Safety Report 8160618-X (Version None)
Quarter: 2012Q1

REPORT INFORMATION
  Report Type: 
  Country: None (occurrence: None)
  Receive Date: 20120223
  Receipt Date: 20120217
  Transmission Date: 20120608
  Serious: Yes (Other)
  Sender: FDA-Public Use
  Company Number: CA-ROCHE-1006511

PATIENT
  Sex: Female
  Weight: 108.96 kg

DRUGS (8)
  1. CALCIUM [Concomitant]
  2. ASPIRIN [Concomitant]
  3. RITUXAN [Suspect]
     Indication: RHEUMATOID ARTHRITIS
     Dosage: FREQUENCY: DAY 1 AND 15
     Route: 042
     Dates: start: 20110531, end: 20110614
  4. MICARDIS [Concomitant]
  5. ELAVIL [Concomitant]
  6. NEXIUM [Concomitant]
  7. NEURONTIN [Concomitant]
     Indication: FIBROMYALGIA
  8. PLAQUENIL [Concomitant]

REACTIONS (3)
  - DYSPNOEA [None]
  - CHEST PAIN [None]
  - BLOOD TEST ABNORMAL [None]
